FAERS Safety Report 11567546 (Version 1)
Quarter: 2015Q3

REPORT INFORMATION
  Report Type: Spontaneous
  Country: US (occurrence: US)
  Receive Date: 20150916
  Receipt Date: 20150916
  Transmission Date: 20151125
  Serious: No
  Sender: FDA-Public Use
  Company Number: US-ELI_LILLY_AND_COMPANY-US200907005248

PATIENT
  Age: 76 Year
  Sex: Female

DRUGS (3)
  1. LOTENSIN [Concomitant]
     Active Substance: BENAZEPRIL HYDROCHLORIDE
  2. FORTEO [Suspect]
     Active Substance: TERIPARATIDE
     Dosage: 20 UG, DAILY (1/D)
     Dates: start: 2008
  3. ANTIHYPERTENSIVES [Concomitant]
     Active Substance: UNSPECIFIED INGREDIENT

REACTIONS (6)
  - Dysphagia [Unknown]
  - Somnolence [Unknown]
  - Cough [Unknown]
  - Irritability [Unknown]
  - Contusion [Unknown]
  - Fatigue [Unknown]

NARRATIVE: CASE EVENT DATE: 2009
